FAERS Safety Report 7363994 (Version 3)
Quarter: 2012Q4

REPORT INFORMATION
  Report Type: 
  Country: US (occurrence: US)
  Receive Date: 20100423
  Receipt Date: 20120918
  Transmission Date: 20130627
  Serious: Yes (Hospitalization)
  Sender: FDA-Public Use
  Company Number: US-BAYER-201019701NA

PATIENT
  Age: 21 Year
  Sex: Female
  Weight: 104.31 kg

DRUGS (5)
  1. YAZ [Suspect]
     Indication: ORAL CONTRACEPTION
     Dosage: UNK
     Dates: start: 200802, end: 200804
  2. YAZ [Suspect]
     Indication: ORAL CONTRACEPTION
  3. VITAMIN C [Concomitant]
  4. NSAID^S [Concomitant]
  5. AMOXICILLIN [Concomitant]
     Indication: EAR INFECTION

REACTIONS (3)
  - Intracranial venous sinus thrombosis [None]
  - Transient ischaemic attack [None]
  - Headache [None]
